FAERS Safety Report 7861901-5 (Version None)
Quarter: 2011Q4

REPORT INFORMATION
  Report Type: 
  Country: None (occurrence: None)
  Receive Date: 20111027
  Receipt Date: 20101118
  Transmission Date: 20120403
  Serious: No
  Sender: FDA-Public Use
  Company Number: US-AMGEN-USASP2010005666

PATIENT
  Age: 60 Year
  Sex: Male
  Weight: 104.31 kg

DRUGS (6)
  1. VITAMIN D [Concomitant]
     Dosage: 1000 IU, UNK
     Route: 048
  2. XANAX [Concomitant]
     Dosage: .25 MG, UNK
     Route: 048
  3. LORTAB [Concomitant]
     Dosage: 10 UNK, UNK
     Route: 048
  4. FOLIC ACID [Concomitant]
     Dosage: 20 MG, UNK
     Route: 048
  5. METHOTREXATE [Concomitant]
     Dosage: 25 MG, UNK
  6. ENBREL [Suspect]
     Indication: PRODUCT USED FOR UNKNOWN INDICATION
     Dosage: 50 MG, QWK
     Route: 058

REACTIONS (3)
  - INJECTION SITE SWELLING [None]
  - INJECTION SITE ERYTHEMA [None]
  - INJECTION SITE REACTION [None]
